FAERS Safety Report 16008377 (Version 1)
Quarter: 2019Q1

REPORT INFORMATION
  Report Type: Spontaneous
  Country: AU (occurrence: AU)
  Receive Date: 20190226
  Receipt Date: 20190226
  Transmission Date: 20190418
  Serious: Yes (Other)
  Sender: FDA-Public Use
  Company Number: PHHY2019AU038378

PATIENT
  Age: 33 Year
  Sex: Male

DRUGS (10)
  1. CIPROFLOXACIN. [Suspect]
     Active Substance: CIPROFLOXACIN
     Indication: RHODOCOCCUS INFECTION
     Dosage: 750 MG, BID
     Route: 048
  2. ERTAPENEM. [Suspect]
     Active Substance: ERTAPENEM SODIUM
     Indication: PRODUCT USED FOR UNKNOWN INDICATION
     Dosage: 1 G, QD
     Route: 042
  3. GRANULOCYTE COLONY STIMULATING FACTOR [Concomitant]
     Active Substance: GRANULOCYTE COLONY-STIMULATING FACTOR NOS
     Indication: RHODOCOCCUS INFECTION
     Dosage: 300 UG, UNK
     Route: 065
  4. AZITHROMYCIN ANHYDROUS. [Suspect]
     Active Substance: AZITHROMYCIN ANHYDROUS
     Indication: PRODUCT USED FOR UNKNOWN INDICATION
     Dosage: 1 G, QW
     Route: 065
  5. ATAZANAVIR. [Suspect]
     Active Substance: ATAZANAVIR
     Indication: RHODOCOCCUS INFECTION
     Dosage: 300 MG, QD
     Route: 065
  6. EMTRICITABINE+TENOFOVIR [Suspect]
     Active Substance: EMTRICITABINE\TENOFOVIR
     Indication: RHODOCOCCUS INFECTION
     Dosage: 300/200 MG DAILY
     Route: 065
  7. SULFAMETHOXAZOLE AND TRIMETHOPRIM [Suspect]
     Active Substance: SULFAMETHOXAZOLE\TRIMETHOPRIM
     Indication: PRODUCT USED FOR UNKNOWN INDICATION
     Dosage: 80/400 MG DAILY
     Route: 065
  8. RITONAVIR. [Suspect]
     Active Substance: RITONAVIR
     Indication: RHODOCOCCUS INFECTION
     Dosage: 100 MG, QD
     Route: 065
  9. MEROPENEM. [Concomitant]
     Active Substance: MEROPENEM
     Indication: RHODOCOCCUS INFECTION
     Dosage: 1 G, TID
     Route: 042
  10. VANCOMYCIN [Concomitant]
     Active Substance: VANCOMYCIN
     Indication: RHODOCOCCUS INFECTION
     Dosage: 1.25 G, BID
     Route: 065

REACTIONS (11)
  - Mycobacterium avium complex infection [Recovering/Resolving]
  - Pleural effusion [Recovering/Resolving]
  - Headache [Recovering/Resolving]
  - Pyrexia [Recovering/Resolving]
  - Lung consolidation [Recovering/Resolving]
  - Vomiting [Recovering/Resolving]
  - Condition aggravated [Recovering/Resolving]
  - Pulmonary mass [Recovering/Resolving]
  - Lymphadenopathy [Recovering/Resolving]
  - Pulmonary cavitation [Recovering/Resolving]
  - Immune reconstitution inflammatory syndrome [Unknown]
